FAERS Safety Report 10208248 (Version 1)
Quarter: 2014Q2

REPORT INFORMATION
  Report Type: Spontaneous
  Country: US (occurrence: None)
  Receive Date: 20140529
  Receipt Date: 20140529
  Transmission Date: 20141212
  Serious: Yes (Other)
  Sender: FDA-Public Use
  Company Number: None

PATIENT
  Age: 59 Year
  Sex: Female

DRUGS (1)
  1. RIBAVIRIN 200MG [Suspect]
     Indication: HEPATITIS C
     Dosage: 600 MG AM + 900 PM?
     Route: 048

REACTIONS (1)
  - Anaemia [None]
